FAERS Safety Report 6173934-8 (Version None)
Quarter: 2009Q2

REPORT INFORMATION
  Report Type: 
  Country: None (occurrence: None)
  Receive Date: 20090429
  Receipt Date: 20090429
  Transmission Date: 20091009
  Serious: Yes (Other)
  Sender: FDA-Public Use
  Company Number: None

PATIENT
  Age: 54 Year
  Sex: Female
  Weight: 68.0396 kg

DRUGS (1)
  1. MONISTAT 1 COMBINATION PACK [Suspect]
     Indication: FUNGAL INFECTION
     Dosage: REGULAR 1-DAY DOSE ONCE VAG
     Route: 067

REACTIONS (4)
  - SWELLING [None]
  - VAGINAL SWELLING [None]
  - VULVAL DISORDER [None]
  - VULVOVAGINAL PAIN [None]
